FAERS Safety Report 5223271-0 (Version None)
Quarter: 2007Q1

REPORT INFORMATION
  Report Type: 
  Country: None (occurrence: None)
  Receive Date: 20061201
  Receipt Date: 20060811
  Transmission Date: 20070707
  Serious: No
  Sender: FDA-Public Use
  Company Number: 2005PV003734

PATIENT
  Age: 61 Year
  Sex: Male
  Weight: 86.1834 kg

DRUGS (5)
  1. BYETTA [Suspect]
     Indication: DIABETES MELLITUS NON-INSULIN-DEPENDENT
     Dosage: SEE IMAGE
     Route: 058
     Dates: start: 20050901, end: 20050101
  2. BYETTA [Suspect]
     Indication: DIABETES MELLITUS NON-INSULIN-DEPENDENT
     Dosage: SEE IMAGE
     Route: 058
     Dates: start: 20050101
  3. ACTOS [Suspect]
     Dosage: 15 MG; QD;
     Dates: start: 19970101, end: 20051201
  4. GLUCOTROL XL [Concomitant]
  5. GLYBURIDE [Concomitant]

REACTIONS (4)
  - BLOOD GLUCOSE DECREASED [None]
  - NAUSEA [None]
  - TREMOR [None]
  - VITREOUS DISORDER [None]
